FAERS Safety Report 20780204 (Version 1)
Quarter: 2022Q2

REPORT INFORMATION
  Report Type: Report from Study
  Country: US (occurrence: US)
  Receive Date: 20220503
  Receipt Date: 20220503
  Transmission Date: 20220720
  Serious: Yes (Congenital Anomaly, Other)
  Sender: FDA-Public Use
  Company Number: US-BRISTOL-MYERS SQUIBB COMPANY-2022-024724

PATIENT

DRUGS (3)
  1. REYATAZ [Suspect]
     Active Substance: ATAZANAVIR SULFATE
     Indication: Product used for unknown indication
     Dosage: 1ST COURSE
     Route: 064
     Dates: start: 20140508, end: 20140712
  2. COMBIVIR [Suspect]
     Active Substance: LAMIVUDINE\ZIDOVUDINE
     Indication: Product used for unknown indication
     Dosage: 1ST COURSE
     Route: 064
     Dates: start: 20140508, end: 20140712
  3. NORVIR [Suspect]
     Active Substance: RITONAVIR
     Indication: Product used for unknown indication
     Dosage: 1ST COURSE
     Route: 064
     Dates: start: 20140508, end: 20140712

REACTIONS (2)
  - Foetal exposure during pregnancy [Unknown]
  - Congenital pyelocaliectasis [Unknown]

NARRATIVE: CASE EVENT DATE: 20140508
